FAERS Safety Report 18451589 (Version 3)
Quarter: 2020Q4

REPORT INFORMATION
  Report Type: Spontaneous
  Country: FR (occurrence: FR)
  Receive Date: 20201102
  Receipt Date: 20201230
  Transmission Date: 20210114
  Serious: Yes (Other)
  Sender: FDA-Public Use
  Company Number: FR-REGENERON PHARMACEUTICALS, INC.-2020-85854

PATIENT

DRUGS (1)
  1. EYLEA [Suspect]
     Active Substance: AFLIBERCEPT
     Indication: NEOVASCULAR AGE-RELATED MACULAR DEGENERATION
     Dosage: LAST DOSE PRIOR THE EVENT, TOTAL EYLEA DOSE WAS NOT REPORTED
     Dates: start: 20200915, end: 20200915

REACTIONS (3)
  - Device use issue [Unknown]
  - Sudden visual loss [Unknown]
  - Ocular hypertension [Recovered/Resolved]
